FAERS Safety Report 8097238-1 (Version None)
Quarter: 2012Q1

REPORT INFORMATION
  Report Type: 
  Country: None (occurrence: None)
  Receive Date: 20120128
  Receipt Date: 20110618
  Transmission Date: 20120608
  Serious: No
  Sender: FDA-Public Use
  Company Number: US-ABBOTT-11P-163-0733653-00

PATIENT
  Age: 59 Year
  Sex: Male

DRUGS (9)
  1. METOPROLOL TARTRATE [Concomitant]
     Indication: HYPERTENSION
  2. VITAMIN D SUPER STRENGHT D-2000 [Concomitant]
     Indication: VITAMIN SUPPLEMENTATION
     Dosage: DAILY
  3. VITAMIN B-12 [Concomitant]
     Indication: VITAMIN SUPPLEMENTATION
     Dosage: DAILY
  4. ASCORBIC ACID [Concomitant]
     Indication: VITAMIN SUPPLEMENTATION
     Dosage: DAILY
  5. SOW PALMETTO [Concomitant]
     Indication: SUPPLEMENTATION THERAPY
     Dosage: DAILY
  6. MULTI-VITAMIN [Concomitant]
     Indication: VITAMIN SUPPLEMENTATION
     Dosage: DAILY
  7. HUMIRA [Suspect]
     Indication: CROHN'S DISEASE
     Dosage: HAS TAKEN 4 PENS (160MG)
     Dates: start: 20110603, end: 20110603
  8. HUMIRA [Suspect]
     Dosage: 2 PENS(80MG), THEN 1 PEN(40MG) EOW
  9. ASPIRIN [Concomitant]
     Indication: PROPHYLAXIS
     Dosage: DAILY

REACTIONS (1)
  - ORAL HERPES [None]
